FAERS Safety Report 8088589-5 (Version None)
Quarter: 2012Q1

REPORT INFORMATION
  Report Type: 
  Country: None (occurrence: None)
  Receive Date: 20120128
  Receipt Date: 20110408
  Transmission Date: 20120608
  Serious: No
  Sender: FDA-Public Use
  Company Number: US-ABBOTT-11P-163-0717646-00

PATIENT
  Sex: Female
  Weight: 108.96 kg

DRUGS (5)
  1. HUMIRA [Suspect]
     Indication: PSORIATIC ARTHROPATHY
     Dates: start: 20110121
  2. HUMIRA [Suspect]
     Indication: PSORIASIS
  3. WELLBUTRIN [Concomitant]
     Indication: DEPRESSION
  4. ZIAC [Concomitant]
     Indication: HYPERTENSION
  5. VIAMOVIL [Concomitant]
     Indication: PAIN

REACTIONS (7)
  - BACK PAIN [None]
  - BODY TEMPERATURE INCREASED [None]
  - KIDNEY INFECTION [None]
  - WHITE BLOOD CELL COUNT INCREASED [None]
  - HOT FLUSH [None]
  - RED BLOOD CELLS URINE [None]
  - URINE ABNORMALITY [None]
